FAERS Safety Report 9659528 (Version 2)
Quarter: 2013Q4

REPORT INFORMATION
  Report Type: Report from Study
  Country: BR (occurrence: BR)
  Receive Date: 20131031
  Receipt Date: 20131113
  Transmission Date: 20140711
  Serious: Yes (Hospitalization)
  Sender: FDA-Public Use
  Company Number: PHHY2013BR122803

PATIENT
  Sex: Female
  Weight: 77 kg

DRUGS (8)
  1. ACLASTA [Suspect]
     Indication: OSTEOPOROSIS
     Dosage: 5 MG, UNK
     Route: 042
     Dates: start: 2010
  2. ACLASTA [Suspect]
     Dosage: 5 MG, UNK
     Route: 042
     Dates: start: 2012
  3. PANTOPRAZOLE [Concomitant]
     Dosage: UNK UKN, UNK
  4. SELO-ZOK [Concomitant]
     Dosage: UNK UKN, UNK
  5. RASILEZ [Concomitant]
     Dosage: UNK UKN, UNK
     Dates: start: 2011
  6. SOMALGIN [Concomitant]
     Dosage: UNK UKN, UNK
     Dates: start: 2011
  7. OS-CAL + D [Concomitant]
     Dosage: UNK UKN, UNK
  8. GLIFAGE [Concomitant]
     Dosage: UNK UKN, UNK
     Dates: start: 2008

REACTIONS (4)
  - Erysipelas [Recovering/Resolving]
  - Wound [Recovering/Resolving]
  - Inflammation of wound [Recovering/Resolving]
  - Erythema [Recovering/Resolving]
